FAERS Safety Report 25852125 (Version 3)
Quarter: 2025Q4

REPORT INFORMATION
  Report Type: Report from Study
  Country: EG (occurrence: EG)
  Receive Date: 20250926
  Receipt Date: 20251122
  Transmission Date: 20260117
  Serious: Yes (Other)
  Sender: NOVARTIS
  Company Number: EG-002147023-NVSC2025EG150277

PATIENT
  Age: 69 Year
  Sex: Female
  Weight: 80 kg

DRUGS (12)
  1. ENTRESTO [Suspect]
     Active Substance: SACUBITRIL\VALSARTAN
     Indication: Cardiac failure
     Dosage: 100 MG, BID
     Route: 048
     Dates: end: 20250921
  2. ENTRESTO [Suspect]
     Active Substance: SACUBITRIL\VALSARTAN
     Dosage: 200 MG, BID (ENTRESTO 100MG AS THE REPORTER STATED THAT THE PATIENT SUFFERED FROM HYPOTENSION (EVENT
     Route: 048
     Dates: start: 20250922, end: 20250922
  3. ENTRESTO [Suspect]
     Active Substance: SACUBITRIL\VALSARTAN
     Dosage: 100 MG, BID
     Route: 048
  4. FEMARA [Suspect]
     Active Substance: LETROZOLE
     Indication: Breast cancer
     Dosage: UNK, QD
     Route: 048
     Dates: start: 2021
  5. FEMARA [Suspect]
     Active Substance: LETROZOLE
     Indication: Hormone therapy
  6. HERCEPTIN [Concomitant]
     Active Substance: TRASTUZUMAB
     Indication: Breast cancer
     Dosage: UNK (ONE INJECTION EVERY 15 DAYS)
     Route: 042
     Dates: start: 2022
  7. Femapent [Concomitant]
     Indication: Breast cancer
     Dosage: 2.5 MG, QD
     Route: 048
  8. Femapent [Concomitant]
     Indication: Hormone therapy
  9. ATENOLOL\CHLORTHALIDONE [Concomitant]
     Active Substance: ATENOLOL\CHLORTHALIDONE
     Indication: Hypertension
     Dosage: 50 MG, QD
     Route: 048
     Dates: end: 202411
  10. NEBIVOLOL HYDROCHLORIDE [Concomitant]
     Active Substance: NEBIVOLOL HYDROCHLORIDE
     Indication: Hypertension
     Dosage: 12.5 MG, QD
     Route: 048
  11. JANUMET [Concomitant]
     Active Substance: METFORMIN HYDROCHLORIDE\SITAGLIPTIN PHOSPHATE
     Indication: Diabetes mellitus
     Dosage: UNK, QD (50/1000 MG)
     Route: 048
  12. PLAVIX [Concomitant]
     Active Substance: CLOPIDOGREL BISULFATE
     Indication: Blood disorder
     Dosage: 75 MG, QD
     Route: 048
     Dates: start: 2023

REACTIONS (5)
  - Hypotension [Recovered/Resolved]
  - Blood cholesterol increased [Not Recovered/Not Resolved]
  - Product dose omission issue [Not Recovered/Not Resolved]
  - Heart rate increased [Unknown]
  - Dyspnoea [Unknown]

NARRATIVE: CASE EVENT DATE: 20250922
